FAERS Safety Report 12584278 (Version 1)
Quarter: 2016Q3

REPORT INFORMATION
  Report Type: Report from Study
  Country: BR (occurrence: BR)
  Receive Date: 20160722
  Receipt Date: 20160722
  Transmission Date: 20161109
  Serious: Yes (Other)
  Sender: FDA-Public Use
  Company Number: PHHY2016BR100018

PATIENT
  Sex: Female

DRUGS (4)
  1. FORASEQ [Suspect]
     Active Substance: BUDESONIDE\FORMOTEROL FUMARATE
     Dosage: 2 DF, QD
     Route: 055
  2. FORASEQ [Suspect]
     Active Substance: BUDESONIDE\FORMOTEROL FUMARATE
     Indication: ASTHMA
     Dosage: 1 DF (BUDESONIDE 400 UG AND FORMOTEROL FUMARATE 12 UG), (APPROXIMATELY FIFTEEN YEARS AGO)
     Route: 055
  3. FORASEQ [Suspect]
     Active Substance: BUDESONIDE\FORMOTEROL FUMARATE
     Dosage: 1 DF, QD
     Route: 055
  4. FORASEQ [Suspect]
     Active Substance: BUDESONIDE\FORMOTEROL FUMARATE
     Dosage: 1 DF, Q8H (WHEN SHE TRAVELLED, SHE HAD STRONG EPISODE )
     Route: 055

REACTIONS (4)
  - Diabetes mellitus [Unknown]
  - Asthma [Unknown]
  - Inappropriate schedule of drug administration [Unknown]
  - Weight increased [Unknown]
